FAERS Safety Report 6259218-8 (Version None)
Quarter: 2009Q3

REPORT INFORMATION
  Report Type: 
  Country: None (occurrence: None)
  Receive Date: 20090707
  Receipt Date: 20090626
  Transmission Date: 20100115
  Serious: Yes (Hospitalization)
  Sender: FDA-Public Use
  Company Number: FR-AVENTIS-200912391FR

PATIENT
  Age: 35 Year
  Sex: Female

DRUGS (7)
  1. SOLUPRED                           /00016201/ [Suspect]
     Indication: SINUSITIS
     Route: 048
     Dates: start: 20090214, end: 20090216
  2. SOLUPRED                           /00016201/ [Suspect]
     Route: 048
     Dates: start: 20090217, end: 20090218
  3. NASACORT [Suspect]
     Indication: SINUSITIS
     Route: 055
     Dates: start: 20090214, end: 20090221
  4. AUGMENTIN '125' [Suspect]
     Indication: SINUSITIS
     Route: 048
     Dates: start: 20090214, end: 20090221
  5. FLUIMUCIL                          /00082801/ [Suspect]
     Indication: SINUSITIS
     Route: 048
     Dates: start: 20090214, end: 20090221
  6. PARACETAMOL [Concomitant]
     Dates: start: 20090101, end: 20090101
  7. TAMIFLU [Concomitant]
     Dates: start: 20090101, end: 20090101

REACTIONS (1)
  - ACUTE GENERALISED EXANTHEMATOUS PUSTULOSIS [None]
